FAERS Safety Report 7230191-9 (Version None)
Quarter: 2011Q1

REPORT INFORMATION
  Report Type: 
  Country: None (occurrence: None)
  Receive Date: 20110118
  Receipt Date: 20110106
  Transmission Date: 20110831
  Serious: Yes (Death, Hospitalization)
  Sender: FDA-Public Use
  Company Number: US-JNJFOC-20110101818

PATIENT
  Age: 42 Year
  Sex: Female

DRUGS (2)
  1. ACETAMINOPHEN/DIPHENHYDRAMINE HCL [Suspect]
     Indication: SUICIDE ATTEMPT
     Route: 048
  2. BENZODIAZEPINE NOS [Suspect]
     Indication: SUICIDE ATTEMPT
     Route: 048

REACTIONS (5)
  - HEPATIC NECROSIS [None]
  - PLEURAL EFFUSION [None]
  - PULMONARY CONGESTION [None]
  - UNRESPONSIVE TO STIMULI [None]
  - INTENTIONAL OVERDOSE [None]
